FAERS Safety Report 7979587-8 (Version None)
Quarter: 2011Q4

REPORT INFORMATION
  Report Type: 
  Country: None (occurrence: None)
  Receive Date: 20111213
  Receipt Date: 20111213
  Transmission Date: 20120403
  Serious: Yes (Hospitalization)
  Sender: FDA-Public Use
  Company Number: None

PATIENT
  Age: 65 Year
  Sex: Male
  Weight: 85.5 kg

DRUGS (1)
  1. GALANTAMINE HYDROBROMIDE [Suspect]
     Indication: DEMENTIA
     Dosage: 8 MG BID PO
     Route: 048
     Dates: start: 20110501, end: 20111102

REACTIONS (5)
  - HALLUCINATION [None]
  - ANXIETY [None]
  - HALLUCINATION, TACTILE [None]
  - HYPERVIGILANCE [None]
  - POOR QUALITY SLEEP [None]
